FAERS Safety Report 15950067 (Version 2)
Quarter: 2019Q1

REPORT INFORMATION
  Report Type: Spontaneous
  Country: BR (occurrence: BR)
  Receive Date: 20190211
  Receipt Date: 20190228
  Transmission Date: 20190417
  Serious: Yes (Other)
  Sender: FDA-Public Use
  Company Number: BR-009507513-1902BRA002307

PATIENT
  Age: 57 Year
  Sex: Male
  Weight: 78 kg

DRUGS (10)
  1. JARDIANCE [Concomitant]
     Active Substance: EMPAGLIFLOZIN
     Indication: ANTACID THERAPY
  2. JANUMET [Suspect]
     Active Substance: METFORMIN HYDROCHLORIDE\SITAGLIPTIN PHOSPHATE
     Indication: TYPE 2 DIABETES MELLITUS
     Dosage: TABLET (50/850 MILLIGRAM), DAILY
     Route: 048
     Dates: start: 201808, end: 20190206
  3. SINVASTACOR [Concomitant]
     Active Substance: SIMVASTATIN
     Indication: BLOOD CHOLESTEROL INCREASED
     Dosage: 1 TABLET (40 MG) DAILY
     Route: 048
     Dates: start: 2016
  4. ASPIRIN. [Concomitant]
     Active Substance: ASPIRIN
     Indication: CARDIOVASCULAR EVENT PROPHYLAXIS
     Dosage: 1 TABLET (100 MILLIGRAM,)DAILY
     Dates: start: 2018
  5. VITAMIN B (UNSPECIFIED) [Concomitant]
     Active Substance: VITAMIN B
     Indication: MALABSORPTION
     Dosage: 2 TABLETS WEEKLY
     Route: 048
     Dates: start: 2011
  6. JARDIANCE [Concomitant]
     Active Substance: EMPAGLIFLOZIN
     Indication: TYPE 2 DIABETES MELLITUS
     Dosage: 1 TABLET (5MG) IN THE MORNING
     Route: 048
     Dates: start: 2015
  7. SINVASTACOR [Concomitant]
     Active Substance: SIMVASTATIN
     Indication: HEPATIC STEATOSIS
  8. JANUMET [Suspect]
     Active Substance: METFORMIN HYDROCHLORIDE\SITAGLIPTIN PHOSPHATE
     Dosage: TABLET (50/850 MILLIGRAM), ONE IN THE MORNING AND ONE AFTER DINNER
     Route: 048
     Dates: start: 20190206
  9. PURAN [Concomitant]
     Active Substance: LEVOTHYROXINE SODIUM
     Indication: THYROID DISORDER
     Dosage: 1 TABLET, (100 MILLIGRAM) IN THE MORNING
     Route: 048
     Dates: start: 2015
  10. ENALAPRIL [Concomitant]
     Active Substance: ENALAPRIL
     Indication: PROPHYLAXIS
     Dosage: 2 TABLETS (20 MILLIGRAM) DAILY
     Route: 048
     Dates: start: 2015

REACTIONS (5)
  - Blood glucose increased [Recovered/Resolved]
  - Diabetes mellitus inadequate control [Recovered/Resolved]
  - Peripheral coldness [Recovered/Resolved]
  - Inappropriate schedule of product administration [Unknown]
  - Headache [Recovered/Resolved]

NARRATIVE: CASE EVENT DATE: 201808
